FAERS Safety Report 21974368 (Version 3)
Quarter: 2023Q1

REPORT INFORMATION
  Report Type: Spontaneous
  Country: PT (occurrence: None)
  Receive Date: 20230209
  Receipt Date: 20230330
  Transmission Date: 20230418
  Serious: Yes (Death, Hospitalization, Other)
  Sender: FDA-Public Use
  Company Number: 2023A033476

PATIENT
  Age: 39 Year
  Sex: Female

DRUGS (1)
  1. OLAPARIB [Suspect]
     Active Substance: OLAPARIB
     Dosage: 300 MG TWICE A DAY
     Dates: start: 20211126, end: 20220802

REACTIONS (1)
  - Malignant neoplasm progression [Fatal]
